FAERS Safety Report 5749229-0 (Version None)
Quarter: 2008Q2

REPORT INFORMATION
  Report Type: 
  Country: None (occurrence: None)
  Receive Date: 20080521
  Receipt Date: 20080521
  Transmission Date: 20081010
  Serious: Yes (Other)
  Sender: FDA-Public Use
  Company Number: None

PATIENT
  Age: 58 Year
  Sex: Female
  Weight: 52.1637 kg

DRUGS (1)
  1. LAMICTAL [Suspect]
     Indication: ONYCHOMYCOSIS
     Dates: start: 20080423, end: 20080516

REACTIONS (22)
  - ABNORMAL BEHAVIOUR [None]
  - AGGRESSION [None]
  - BIPOLAR DISORDER [None]
  - CHEST PAIN [None]
  - CONDITION AGGRAVATED [None]
  - CONTUSION [None]
  - CRYING [None]
  - DEHYDRATION [None]
  - DRUG DISPENSING ERROR [None]
  - EYE SWELLING [None]
  - FOOT FRACTURE [None]
  - GAIT DISTURBANCE [None]
  - INSOMNIA [None]
  - MENTAL DISORDER [None]
  - PRURITUS [None]
  - RESTLESSNESS [None]
  - SUICIDAL IDEATION [None]
  - TRANSIENT ISCHAEMIC ATTACK [None]
  - VISION BLURRED [None]
  - VISUAL DISTURBANCE [None]
  - WEIGHT DECREASED [None]
  - WRONG DRUG ADMINISTERED [None]
